FAERS Safety Report 4521730-7 (Version None)
Quarter: 2004Q4

REPORT INFORMATION
  Report Type: 
  Country: None (occurrence: None)
  Receive Date: 20041206
  Receipt Date: 20041124
  Transmission Date: 20050328
  Serious: Yes (Other)
  Sender: FDA-Public Use
  Company Number: 2004097849

PATIENT
  Age: 62 Year
  Sex: Female
  Weight: 59.8748 kg

DRUGS (6)
  1. NICORETTE [Suspect]
     Indication: SMOKING CESSATION THERAPY
     Dosage: (2MG) 1 PIECE 4-5 TIMES DAILY, ORAL
     Route: 048
     Dates: start: 20010101
  2. NICORETTE [Suspect]
     Indication: SMOKING CESSATION THERAPY
     Dosage: 1-2 INHALATIONS IN THE MORNINGS, INHALATION
     Route: 055
     Dates: start: 20041101
  3. LEVOTHYROXINE SODIUM [Concomitant]
  4. TOCOPHEROL CONCENTRATE CAP [Concomitant]
  5. CALCIUM (CALCIUM) [Concomitant]
  6. ENZYMES (ENZYMES) [Concomitant]

REACTIONS (5)
  - DRUG DEPENDENCE [None]
  - OVERDOSE [None]
  - SELF-MEDICATION [None]
  - THERAPEUTIC RESPONSE DECREASED [None]
  - TREATMENT NONCOMPLIANCE [None]
